FAERS Safety Report 5392269-4 (Version None)
Quarter: 2007Q3

REPORT INFORMATION
  Report Type: 
  Country: None (occurrence: None)
  Receive Date: 20070720
  Receipt Date: 20070711
  Transmission Date: 20080115
  Serious: Yes (Hospitalization)
  Sender: FDA-Public Use
  Company Number: ES-AMGEN-US232391

PATIENT
  Age: 50 Year
  Sex: Male

DRUGS (1)
  1. ENBREL [Suspect]
     Indication: PSORIASIS
     Route: 058
     Dates: start: 20070526, end: 20070619

REACTIONS (3)
  - ABDOMINAL PAIN [None]
  - GASTROENTERITIS EOSINOPHILIC [None]
  - INJECTION SITE PAIN [None]
